FAERS Safety Report 6209212-8 (Version None)
Quarter: 2009Q2

REPORT INFORMATION
  Report Type: 
  Country: None (occurrence: None)
  Receive Date: 20090529
  Receipt Date: 20090518
  Transmission Date: 20091009
  Serious: Yes (Hospitalization)
  Sender: FDA-Public Use
  Company Number: US-JNJFOC-20090504714

PATIENT
  Sex: Male
  Weight: 65.5 kg

DRUGS (6)
  1. REMICADE [Suspect]
     Indication: INFLAMMATORY BOWEL DISEASE
     Route: 042
  2. CLOXACILLIN [Concomitant]
     Indication: DRUG USE FOR UNKNOWN INDICATION
  3. VANCOMYCIN HCL [Concomitant]
  4. TPN [Concomitant]
  5. GABAPENTIN [Concomitant]
  6. LANSOPRAZOLE [Concomitant]

REACTIONS (1)
  - PANCREATITIS [None]
